FAERS Safety Report 8326991-4 (Version None)
Quarter: 2012Q2

REPORT INFORMATION
  Report Type: 
  Country: None (occurrence: None)
  Receive Date: 20120501
  Receipt Date: 20120419
  Transmission Date: 20120825
  Serious: Yes (Death)
  Sender: FDA-Public Use
  Company Number: CA-ROCHE-517005

PATIENT

DRUGS (1)
  1. ACCUTANE [Suspect]
     Indication: ACNE
     Dosage: ACCUTANE DOSE REGIMEN REPORTED AS: 2 CAPSULES EVERY DAY AND 1 CAPSULE EVERY SECOND DAY.
     Route: 064

REACTIONS (2)
  - HYDROCEPHALUS [None]
  - MATERNAL EXPOSURE TIMING UNSPECIFIED [None]
